FAERS Safety Report 9167813 (Version 2)
Quarter: 2013Q1

REPORT INFORMATION
  Report Type: Spontaneous
  Country: GB (occurrence: None)
  Receive Date: 20130307
  Receipt Date: 20130319
  Transmission Date: 20140127
  Serious: Yes (Life-Threatening)
  Sender: FDA-Public Use
  Company Number: AUR-APL-2013-01766

PATIENT
  Age: 77 Year
  Sex: Male
  Weight: 106 kg

DRUGS (6)
  1. FINASTERIDE [Suspect]
     Indication: BENIGN PROSTATIC HYPERPLASIA
     Route: 048
     Dates: start: 20120618, end: 20120812
  2. ATENOLOL (ATENOLOL) [Concomitant]
  3. LISINOPRIL (LISINOPRIL) [Concomitant]
  4. METFORMIN (METFORMIN) [Concomitant]
  5. PIOGLITAZONE (PIOGLITAZONE) [Concomitant]
  6. TAMSULOSIN (TAMSULOSIN) [Concomitant]

REACTIONS (2)
  - Emotional poverty [None]
  - Suicidal ideation [None]
